FAERS Safety Report 7101182-3 (Version None)
Quarter: 2010Q4

REPORT INFORMATION
  Report Type: 
  Country: None (occurrence: None)
  Receive Date: 20101114
  Receipt Date: 20101103
  Transmission Date: 20110411
  Serious: Yes (Hospitalization)
  Sender: FDA-Public Use
  Company Number: AU-BRISTOL-MYERS SQUIBB COMPANY-15366396

PATIENT
  Age: 60 Year
  Sex: Male
  Weight: 90 kg

DRUGS (3)
  1. CETUXIMAB [Suspect]
     Indication: GASTROOESOPHAGEAL CANCER
     Dosage: MOST RECENT DOSE ON 04OCT2010.NO OF INFUSIONS:9.
     Route: 042
     Dates: start: 20100806, end: 20101004
  2. CISPLATIN [Suspect]
     Indication: GASTROOESOPHAGEAL CANCER
     Dosage: MOST RECENT INFUSION ON 20SEP2010.ON DAY 1 OF CYCLE.DOSE REDUCED TO 60MG/M2
     Route: 042
     Dates: start: 20100806, end: 20100920
  3. XELODA [Suspect]
     Indication: GASTROOESOPHAGEAL CANCER
     Dosage: TABLET.ON DAY 1-15; MOST RECENT INFUSION ON 04OCT2010.DOSE REDUCED TO 750MG/M2
     Route: 048
     Dates: start: 20100806

REACTIONS (3)
  - ANGINA PECTORIS [None]
  - DEEP VEIN THROMBOSIS [None]
  - OEDEMA PERIPHERAL [None]
